FAERS Safety Report 5227578-2 (Version None)
Quarter: 2007Q1

REPORT INFORMATION
  Report Type: 
  Country: None (occurrence: None)
  Receive Date: 20070202
  Receipt Date: 20070122
  Transmission Date: 20070707
  Serious: Yes (Other)
  Sender: FDA-Public Use
  Company Number: US-JNJFOC-20070106417

PATIENT
  Sex: Male
  Weight: 68.04 kg

DRUGS (4)
  1. DURAGESIC-100 [Suspect]
     Route: 062
  2. DURAGESIC-100 [Suspect]
     Route: 062
  3. DURAGESIC-100 [Suspect]
     Indication: PAIN
     Route: 062
  4. NEURONTIN [Concomitant]
     Indication: PAIN
     Route: 048

REACTIONS (6)
  - ANXIETY [None]
  - APPLICATION SITE ULCER [None]
  - BIPOLAR DISORDER [None]
  - DERMATITIS CONTACT [None]
  - MACULAR DEGENERATION [None]
  - SLEEP DISORDER [None]
